FAERS Safety Report 20336920 (Version 4)
Quarter: 2022Q2

REPORT INFORMATION
  Report Type: Spontaneous
  Country: KR (occurrence: KR)
  Receive Date: 20220114
  Receipt Date: 20220421
  Transmission Date: 20220720
  Serious: Yes (Hospitalization, Other)
  Sender: FDA-Public Use
  Company Number: KR-009507513-2112KOR007331

PATIENT
  Age: 57 Year
  Sex: Female
  Weight: 55.1 kg

DRUGS (32)
  1. PEMBROLIZUMAB [Suspect]
     Active Substance: PEMBROLIZUMAB
     Indication: Endometrial adenocarcinoma
     Dosage: 200 MILLIGRAM
     Route: 042
     Dates: start: 20211019, end: 20211019
  2. PEMBROLIZUMAB [Suspect]
     Active Substance: PEMBROLIZUMAB
     Dosage: 200 MILLIGRAM
     Route: 042
     Dates: start: 20211116, end: 20211116
  3. LENVATINIB MESYLATE [Suspect]
     Active Substance: LENVATINIB MESYLATE
     Indication: Endometrial adenocarcinoma
     Dosage: 20 MILLIGRAM
     Route: 048
     Dates: start: 20211019, end: 20211109
  4. LENVATINIB MESYLATE [Suspect]
     Active Substance: LENVATINIB MESYLATE
     Dosage: 20 MILLIGRAM
     Route: 048
     Dates: start: 20211116, end: 20211121
  5. ISOMACK RETARD [Concomitant]
     Dosage: 2 CAPS, QD
     Route: 048
     Dates: start: 20211124, end: 20211129
  6. GASTER [Concomitant]
     Active Substance: FAMOTIDINE
     Dosage: 2 TABS, QD
     Route: 048
     Dates: start: 20211128, end: 20211202
  7. FUROSEMIDE [Concomitant]
     Active Substance: FUROSEMIDE
     Dosage: 4 DOSAGE FORM, QD
     Route: 048
     Dates: start: 20211126, end: 20211127
  8. FUROSEMIDE [Concomitant]
     Active Substance: FUROSEMIDE
     Dosage: 2 DOSAGE FORM, QD
     Route: 048
     Dates: start: 20211128, end: 20211128
  9. FUROSEMIDE [Concomitant]
     Active Substance: FUROSEMIDE
     Dosage: 1 DOSAGE FORM, QD
     Route: 048
     Dates: start: 20211129, end: 20211202
  10. FUROSEMIDE [Concomitant]
     Active Substance: FUROSEMIDE
     Dosage: 1 DOSAGE FORM, QD
     Route: 048
     Dates: start: 20211204, end: 20211205
  11. FUROSEMIDE [Concomitant]
     Active Substance: FUROSEMIDE
     Dosage: 0.5 DOSAGE FORM, QD
     Route: 048
     Dates: start: 20211206, end: 20211214
  12. ENAPRIN [Concomitant]
     Dosage: 0.5 DOSAGE FORM, QD
     Route: 048
     Dates: start: 20211124, end: 20211214
  13. ALLOPURINOL [Concomitant]
     Active Substance: ALLOPURINOL
     Dosage: 1 TAB, QD
     Route: 048
     Dates: start: 20211127, end: 20211129
  14. K-CONTIN CONTINUS [Concomitant]
     Dosage: 3 TABS, QD
     Route: 048
     Dates: start: 20211126, end: 20211127
  15. K-CONTIN CONTINUS [Concomitant]
     Dosage: 1 TABS, QD
     Route: 048
     Dates: start: 20211129, end: 20211214
  16. MAGNES [Concomitant]
     Dosage: 2 TABS, QD
     Route: 048
     Dates: start: 20211202, end: 20211202
  17. MAGNES [Concomitant]
     Dosage: 4 TABS, QD
     Route: 048
     Dates: start: 20211203, end: 20211203
  18. MAGNES [Concomitant]
     Dosage: 6 TABS, QD
     Route: 048
     Dates: start: 20211204, end: 20211205
  19. MAGNES [Concomitant]
     Dosage: 4 TABS, QD
     Route: 048
     Dates: start: 20211207, end: 20211214
  20. DIETARY SUPPLEMENT\HERBALS\MILK THISTLE [Concomitant]
     Active Substance: DIETARY SUPPLEMENT\HERBALS\MILK THISTLE
     Dosage: 3 TABS, QD
     Route: 048
     Dates: start: 20211125, end: 20211127
  21. PANTOPRAZOLE SODIUM [Concomitant]
     Active Substance: PANTOPRAZOLE SODIUM
     Dosage: 1 VIAL, QD
     Route: 042
     Dates: start: 20211123, end: 20211127
  22. ASPIRIN [Concomitant]
     Active Substance: ASPIRIN
     Dosage: 1 CAP, QD
     Route: 048
     Dates: start: 20211130, end: 20211201
  23. SPIRODACTONE GUJU [Concomitant]
     Dosage: 1 TAB, QD
     Route: 048
     Dates: start: 20211124, end: 20211129
  24. SPIRODACTONE GUJU [Concomitant]
     Dosage: 0.5 TAB, QD
     Route: 048
     Dates: start: 20211201, end: 20211214
  25. DAEHWA WARFARIN [Concomitant]
     Dosage: 1 TAB, QD
     Route: 048
     Dates: start: 20211204, end: 20211204
  26. DAEHWA WARFARIN [Concomitant]
     Dosage: 3 MILLIGRAM, QD
     Route: 048
     Dates: start: 20211205, end: 20211206
  27. DAEHWA WARFARIN [Concomitant]
     Dosage: 1 TAB, QD
     Route: 048
     Dates: start: 20211207, end: 20211214
  28. ENOXAPARIN SODIUM [Concomitant]
     Active Substance: ENOXAPARIN SODIUM
     Dosage: 40 MILLIGRAM, QD; STRENGTH: 40MG/0.4ML
     Route: 058
     Dates: start: 20211128, end: 20211130
  29. ENOXAPARIN SODIUM [Concomitant]
     Active Substance: ENOXAPARIN SODIUM
     Dosage: 40 MILLIGRAM, QD; STRENGTH: 40MG/0.4ML
     Route: 058
     Dates: start: 20211202, end: 20211202
  30. ENOXAPARIN SODIUM [Concomitant]
     Active Substance: ENOXAPARIN SODIUM
     Dosage: 80 MILLIGRAM, QD; STRENGTH: 40MG/0.4ML
     Route: 058
     Dates: start: 20211203, end: 20211206
  31. ENOXAPARIN SODIUM [Concomitant]
     Active Substance: ENOXAPARIN SODIUM
     Dosage: 40 MILLIGRAM, QD; STRENGTH: 40MG/0.4ML
     Route: 058
     Dates: start: 20211207, end: 20211207
  32. CARVEDILOL [Concomitant]
     Active Substance: CARVEDILOL
     Dosage: 1 TAB, QD
     Route: 048
     Dates: start: 20211123, end: 20211216

REACTIONS (2)
  - Haematochezia [Recovered/Resolved]
  - Product use issue [Unknown]

NARRATIVE: CASE EVENT DATE: 20211116
